FAERS Safety Report 23126617 (Version 2)
Quarter: 2023Q4

REPORT INFORMATION
  Report Type: Spontaneous
  Country: US (occurrence: US)
  Receive Date: 20231030
  Receipt Date: 20231107
  Transmission Date: 20240110
  Serious: Yes (Other)
  Sender: FDA-Public Use
  Company Number: US-SUNOVION-2023SUN001194

PATIENT

DRUGS (2)
  1. LATUDA [Suspect]
     Active Substance: LURASIDONE HYDROCHLORIDE
     Indication: Bipolar disorder
     Dosage: SPLITTING 80 MG
     Route: 048
  2. LATUDA [Suspect]
     Active Substance: LURASIDONE HYDROCHLORIDE
     Dosage: SPLITTING 60 MG
     Route: 048

REACTIONS (4)
  - Consciousness fluctuating [Unknown]
  - Phobia [Unknown]
  - Therapeutic product effect increased [Unknown]
  - Wrong technique in product usage process [Unknown]
